FAERS Safety Report 19164126 (Version 1)
Quarter: 2021Q2

REPORT INFORMATION
  Report Type: Spontaneous
  Country: CL (occurrence: CL)
  Receive Date: 20210421
  Receipt Date: 20210421
  Transmission Date: 20210717
  Serious: Yes (Hospitalization, Other)
  Sender: FDA-Public Use
  Company Number: CL-ORGANON-O2104CHL001527

PATIENT
  Age: 58 Year
  Sex: Female

DRUGS (2)
  1. SERTRALINE [Suspect]
     Active Substance: SERTRALINE HYDROCHLORIDE
     Indication: SUICIDAL IDEATION
     Dosage: 50 MILLIGRAM, QD
  2. PROMYRTIL [Suspect]
     Active Substance: MIRTAZAPINE
     Indication: SUICIDAL IDEATION
     Dosage: 30 MG/DAY
     Route: 048

REACTIONS (18)
  - Feeling abnormal [Unknown]
  - Decreased appetite [Unknown]
  - Somatic symptom disorder [Unknown]
  - Anxiety [Unknown]
  - Crying [Unknown]
  - Feeling guilty [Unknown]
  - Treatment noncompliance [Unknown]
  - Headache [Unknown]
  - Liver disorder [Unknown]
  - Hepatotoxicity [Unknown]
  - Hypothyroidism [Unknown]
  - Suicidal ideation [Unknown]
  - Depression [Unknown]
  - Balance disorder [Unknown]
  - Tremor [Unknown]
  - Dyschezia [Unknown]
  - Insomnia [Unknown]
  - Akathisia [Unknown]
